FAERS Safety Report 16478956 (Version 1)
Quarter: 2019Q2

REPORT INFORMATION
  Report Type: Spontaneous
  Country: CN (occurrence: CN)
  Receive Date: 20190626
  Receipt Date: 20190626
  Transmission Date: 20190711
  Serious: Yes (Other)
  Sender: FDA-Public Use
  Company Number: CN-PFIZER INC-2019267214

PATIENT
  Age: 35 Year
  Sex: Female
  Weight: 53 kg

DRUGS (1)
  1. METHOTREXATE. [Suspect]
     Active Substance: METHOTREXATE
     Indication: PELVIC NEOPLASM
     Dosage: 11.5 G, ONCE DAILY (AFTERNOON)
     Route: 041
     Dates: start: 20190418, end: 20190418

REACTIONS (6)
  - Blood potassium decreased [Unknown]
  - Macroglossia [Unknown]
  - Blood creatinine decreased [Unknown]
  - Muscle tightness [Unknown]
  - Hypoaesthesia [Recovering/Resolving]
  - Blood glucose increased [Unknown]

NARRATIVE: CASE EVENT DATE: 20190418
